FAERS Safety Report 4307185-6 (Version None)
Quarter: 2004Q1

REPORT INFORMATION
  Report Type: 
  Country: None (occurrence: None)
  Receive Date: 20040225
  Receipt Date: 20040211
  Transmission Date: 20041129
  Serious: Yes (Other)
  Sender: FDA-Public Use
  Company Number: USA031253965

PATIENT
  Age: 6 Year
  Sex: Male
  Weight: 29 kg

DRUGS (5)
  1. STRATTERA [Suspect]
     Indication: ATTENTION DEFICIT/HYPERACTIVITY DISORDER
     Dosage: 18 MG/DAY
  2. CLONIDINE [Concomitant]
  3. RYNATAN [Concomitant]
  4. NASONEX [Concomitant]
  5. ALBUTEROL [Concomitant]

REACTIONS (3)
  - CONVULSION [None]
  - GASTRIC DISORDER [None]
  - TREMOR [None]
